FAERS Safety Report 14289696 (Version 2)
Quarter: 2019Q4

REPORT INFORMATION
  Report Type: Spontaneous
  Country: US (occurrence: US)
  Receive Date: 20171214
  Receipt Date: 20191213
  Transmission Date: 20200122
  Serious: No
  Sender: FDA-Public Use
  Company Number: US-ENDO PHARMACEUTICALS INC-2017-002750

PATIENT
  Age: 59 Year
  Sex: Male
  Weight: 63.49 kg

DRUGS (4)
  1. TESTIM [Suspect]
     Active Substance: TESTOSTERONE
     Indication: BLOOD TESTOSTERONE DECREASED
     Dosage: 1 TUBE DAILY TO SHOULDERS
     Route: 062
     Dates: start: 20170124, end: 2017
  2. TESTIM [Suspect]
     Active Substance: TESTOSTERONE
     Indication: OSTEOPOROSIS
     Dosage: 1/2 TUBE TO SHOULDERS ONCE DAILY AFTER 2 WEEKS OF NOT USING THE MEDICATION
     Route: 062
     Dates: start: 2017, end: 2017
  3. TESTIM [Suspect]
     Active Substance: TESTOSTERONE
     Dosage: 1 TUBE DAILY TO SHOULDERS
     Route: 062
     Dates: start: 2017
  4. FORTEO [Concomitant]
     Active Substance: TERIPARATIDE
     Indication: OSTEOPOROSIS

REACTIONS (9)
  - Nausea [Not Recovered/Not Resolved]
  - Nocturia [Not Recovered/Not Resolved]
  - Weight decreased [Unknown]
  - Toothache [Not Recovered/Not Resolved]
  - Feeling abnormal [Not Recovered/Not Resolved]
  - Headache [Not Recovered/Not Resolved]
  - Blood testosterone decreased [Unknown]
  - Condition aggravated [Unknown]
  - Off label use [Not Recovered/Not Resolved]

NARRATIVE: CASE EVENT DATE: 2017
